FAERS Safety Report 9560041 (Version 2)
Quarter: 2013Q4

REPORT INFORMATION
  Report Type: Spontaneous
  Country: US (occurrence: US)
  Receive Date: 20130927
  Receipt Date: 20131108
  Transmission Date: 20140711
  Serious: No
  Sender: FDA-Public Use
  Company Number: US-PFIZER INC-2013274749

PATIENT
  Age: 87 Year
  Sex: Female
  Weight: 54.42 kg

DRUGS (1)
  1. ATORVASTATIN CALCIUM [Suspect]
     Indication: BLOOD CHOLESTEROL INCREASED
     Dosage: 40 MG, 1X/DAY
     Route: 048

REACTIONS (7)
  - Drug hypersensitivity [Recovered/Resolved]
  - Skin exfoliation [Recovered/Resolved]
  - Muscle spasms [Recovered/Resolved]
  - Pain in extremity [Recovered/Resolved]
  - Hypokinesia [Recovered/Resolved]
  - Dyskinesia [Recovered/Resolved]
  - Rash [Unknown]
